FAERS Safety Report 4538152-5 (Version None)
Quarter: 2004Q4

REPORT INFORMATION
  Report Type: 
  Country: None (occurrence: None)
  Receive Date: 20041221
  Receipt Date: 20041208
  Transmission Date: 20050328
  Serious: Yes (Hospitalization, Other)
  Sender: FDA-Public Use
  Company Number: A-CH2004-07768

PATIENT
  Age: 76 Year
  Sex: Female

DRUGS (14)
  1. TRACLEER [Suspect]
     Indication: PULMONARY HYPERTENSION
     Dosage: 62.5 MG, BID; ORAL (SEE IMAGE)
     Route: 048
     Dates: start: 20020529, end: 20020625
  2. TRACLEER [Suspect]
     Indication: PULMONARY HYPERTENSION
     Dosage: 62.5 MG, BID; ORAL (SEE IMAGE)
     Route: 048
     Dates: start: 20020626
  3. ANAESTHETICS, GENERAL [Suspect]
  4. MORPHINE SULFATE [Suspect]
  5. OXYGEN [Concomitant]
  6. SINTROM [Concomitant]
  7. LASILIX (FUROSEMIDE) [Concomitant]
  8. CACIT (CALCIUM CARBONATE, CITRIC ACID) [Concomitant]
  9. REMEGEL (ALUMINIUM HYDROXIDE-MAGNESIUM CARBONATE GEL) [Concomitant]
  10. KAYEXALATE [Concomitant]
  11. UMULINE (INSULIN HUMAN ZINC SUSPENSION) [Concomitant]
  12. OMEPRAZOLE [Concomitant]
  13. IMOVANE (ZOPICLONE) [Concomitant]
  14. LEVOTHYROXINE SODIUM [Concomitant]

REACTIONS (16)
  - ANAESTHETIC COMPLICATION [None]
  - CONDITION AGGRAVATED [None]
  - CYTOLYTIC HEPATITIS [None]
  - FALL [None]
  - FEMUR FRACTURE [None]
  - HAEMODYNAMIC INSTABILITY [None]
  - HEPATIC ENCEPHALOPATHY [None]
  - HEPATIC FAILURE [None]
  - INTESTINAL ISCHAEMIA [None]
  - OVERDOSE [None]
  - POST PROCEDURAL COMPLICATION [None]
  - PULMONARY HYPERTENSION [None]
  - RIGHT VENTRICULAR FAILURE [None]
  - SEPTIC SHOCK [None]
  - SOMNOLENCE [None]
  - STAPHYLOCOCCAL SEPSIS [None]
